FAERS Safety Report 12493239 (Version 1)
Quarter: 2016Q2

REPORT INFORMATION
  Report Type: Spontaneous
  Country: US (occurrence: US)
  Receive Date: 20160623
  Receipt Date: 20160623
  Transmission Date: 20160815
  Serious: No
  Sender: FDA-Public Use
  Company Number: US-BAYER-2016-122718

PATIENT
  Age: 66 Year
  Sex: Female
  Weight: 54.42 kg

DRUGS (2)
  1. MIRALAX [Suspect]
     Active Substance: POLYETHYLENE GLYCOL 3350
     Indication: CONSTIPATION
     Dosage: 1 DF, Q8HR
     Route: 048
     Dates: start: 20160615
  2. OXYCODONE [Concomitant]
     Active Substance: OXYCODONE

REACTIONS (4)
  - Infrequent bowel movements [None]
  - Product use issue [None]
  - Product use issue [None]
  - Product use issue [None]

NARRATIVE: CASE EVENT DATE: 20160615
